FAERS Safety Report 9911753 (Version 1)
Quarter: 2014Q1

REPORT INFORMATION
  Report Type: Spontaneous
  Country: MX (occurrence: MX)
  Receive Date: 20140219
  Receipt Date: 20140219
  Transmission Date: 20141002
  Serious: Yes (Life-Threatening)
  Sender: FDA-Public Use
  Company Number: PHHY2014MX020425

PATIENT
  Sex: Male

DRUGS (4)
  1. TEGRETOL [Suspect]
     Indication: CONVULSION
     Dosage: 10 DF, DAILY
     Dates: start: 20140214
  2. TEGRETOL [Suspect]
     Dosage: 9 DF, DAILY
  3. KEPPRA [Concomitant]
     Indication: CONVULSION
     Dosage: 3.5 G, DAILY
     Dates: start: 200902
  4. VIMPAT [Concomitant]
     Indication: NERVOUS SYSTEM DISORDER
     Dosage: 2 DF, DAILY
     Dates: start: 201302

REACTIONS (7)
  - Terminal state [Recovered/Resolved]
  - Dysstasia [Recovered/Resolved]
  - Speech disorder [Recovered/Resolved]
  - Eye disorder [Recovered/Resolved]
  - Feeling abnormal [Recovered/Resolved]
  - Asthenia [Recovered/Resolved]
  - Sedation [Recovered/Resolved]
